FAERS Safety Report 10228734 (Version 1)
Quarter: 2014Q2

REPORT INFORMATION
  Report Type: Spontaneous
  Country: NL (occurrence: NL)
  Receive Date: 20140610
  Receipt Date: 20140610
  Transmission Date: 20141212
  Serious: Yes (Other)
  Sender: FDA-Public Use
  Company Number: NL-ACTAVIS-2014-11768

PATIENT
  Age: 63 Year
  Sex: Female

DRUGS (1)
  1. TAMOXIFEN ACTAVIS 20 MG [Suspect]
     Indication: PRODUCT USED FOR UNKNOWN INDICATION
     Dosage: 20 MG, DAILY
     Route: 065
     Dates: start: 20140316

REACTIONS (5)
  - Uterine prolapse [Not Recovered/Not Resolved]
  - Bladder prolapse [Not Recovered/Not Resolved]
  - Abdominal pain lower [Not Recovered/Not Resolved]
  - Pollakiuria [Not Recovered/Not Resolved]
  - Uterine enlargement [Not Recovered/Not Resolved]
